FAERS Safety Report 9269566 (Version 2)
Quarter: 2013Q2

REPORT INFORMATION
  Report Type: Spontaneous
  Country: SE (occurrence: SE)
  Receive Date: 20130503
  Receipt Date: 20130509
  Transmission Date: 20140414
  Serious: Yes (Other)
  Sender: FDA-Public Use
  Company Number: SE-PFIZER INC-2013133850

PATIENT
  Age: 17 Year
  Sex: Female

DRUGS (1)
  1. TERRA-CORTRIL POLYMYXIN B [Suspect]
     Indication: ECZEMA
     Dosage: UNK

REACTIONS (4)
  - Deafness [Recovered/Resolved]
  - Headache [Recovered/Resolved]
  - Balance disorder [Recovered/Resolved]
  - Feeling abnormal [Recovered/Resolved]
